FAERS Safety Report 6430121-3 (Version None)
Quarter: 2009Q4

REPORT INFORMATION
  Report Type: 
  Country: None (occurrence: None)
  Receive Date: 20091103
  Receipt Date: 20091029
  Transmission Date: 20100525
  Serious: Yes (Death)
  Sender: FDA-Public Use
  Company Number: 2009SP032250

PATIENT
  Age: 77 Year
  Sex: Male
  Weight: 53 kg

DRUGS (9)
  1. REMERON [Suspect]
     Indication: DEPRESSION
     Dosage: 15 MG; ;PO 15 MG; ;PO 30 MG; ;PO
     Route: 048
     Dates: end: 20091008
  2. REMERON [Suspect]
     Indication: DEPRESSION
     Dosage: 15 MG; ;PO 15 MG; ;PO 30 MG; ;PO
     Route: 048
     Dates: start: 20091009, end: 20091014
  3. REMERON [Suspect]
     Indication: DEPRESSION
     Dosage: 15 MG; ;PO 15 MG; ;PO 30 MG; ;PO
     Route: 048
     Dates: start: 20091015, end: 20091022
  4. MIRTAZAPINE [Suspect]
     Indication: DEPRESSION
     Dosage: ;UNK ;PO
     Route: 048
     Dates: end: 20091008
  5. TOLEDOMIN [Concomitant]
  6. SULPIRIDE [Concomitant]
  7. URIEF (SILODOSIN) [Concomitant]
  8. BLADDERON [Concomitant]
  9. EVIPROSTAT [Concomitant]

REACTIONS (1)
  - COMPLETED SUICIDE [None]
